FAERS Safety Report 6960042-9 (Version None)
Quarter: 2010Q3

REPORT INFORMATION
  Report Type: 
  Country: None (occurrence: None)
  Receive Date: 20100901
  Receipt Date: 20100827
  Transmission Date: 20110219
  Serious: Yes (Death, Life-Threatening, Hospitalization, Other)
  Sender: FDA-Public Use
  Company Number: PHHY2010JP56848

PATIENT
  Sex: Male
  Weight: 51 kg

DRUGS (15)
  1. ICL670A ICL+DISTAB [Suspect]
     Indication: MYELODYSPLASTIC SYNDROME
     Dosage: 750 MG, UNK
     Route: 048
     Dates: start: 20090517, end: 20090824
  2. TAKEPRON [Concomitant]
     Dosage: 15 MG, UNK
     Route: 048
     Dates: start: 20090519
  3. SELBEX [Concomitant]
     Dosage: 1.5 MG, UNK
     Route: 048
     Dates: start: 20090519
  4. VFEND [Concomitant]
     Dosage: 150 MG, UNK
     Route: 048
     Dates: start: 20090101
  5. DAIPHEN [Concomitant]
     Dosage: 1 G, UNK
     Route: 048
     Dates: start: 20090519
  6. PREDONINE [Concomitant]
     Dosage: 10 MG, UNK
     Route: 048
     Dates: start: 20090101
  7. MAGMITT [Concomitant]
     Dosage: 990 MG, UNK
     Route: 048
     Dates: start: 20090101
  8. MIYA-BM [Concomitant]
     Dosage: 3 G, UNK
     Route: 048
     Dates: start: 20090101
  9. SENNOSIDE [Concomitant]
     Dosage: 24 MG, UNK
     Route: 048
     Dates: start: 20090101
  10. BENET [Concomitant]
     Dosage: 17.5 DF, UNK
     Route: 048
     Dates: start: 20090528
  11. RED BLOOD CELLS [Concomitant]
     Dosage: 2 UNITS
     Dates: start: 20090602
  12. RED BLOOD CELLS [Concomitant]
     Dosage: 2 UNITS
     Dates: start: 20090619
  13. RED BLOOD CELLS [Concomitant]
     Dosage: 2 UNITS
     Dates: start: 20090721
  14. RED BLOOD CELLS [Concomitant]
     Dosage: 2 UNITS
     Dates: start: 20090813
  15. RED BLOOD CELLS [Concomitant]
     Dosage: 2 UNITS
     Dates: start: 20090827

REACTIONS (5)
  - CENTRAL VENOUS CATHETERISATION [None]
  - CEREBRAL HAEMORRHAGE [None]
  - DEEP VEIN THROMBOSIS [None]
  - OEDEMA PERIPHERAL [None]
  - RENAL IMPAIRMENT [None]
